FAERS Safety Report 8213700-2 (Version None)
Quarter: 2012Q1

REPORT INFORMATION
  Report Type: 
  Country: None (occurrence: None)
  Receive Date: 20120315
  Receipt Date: 20120308
  Transmission Date: 20120608
  Serious: Yes (Hospitalization, Other)
  Sender: FDA-Public Use
  Company Number: US-BAXTER-2012BH006906

PATIENT
  Sex: Male

DRUGS (3)
  1. EXTRANEAL [Suspect]
     Route: 033
  2. EXTRANEAL [Suspect]
     Indication: PERITONEAL DIALYSIS
     Route: 033
  3. DIANEAL [Suspect]
     Indication: PERITONEAL DIALYSIS
     Route: 033

REACTIONS (10)
  - SKIN DEGENERATIVE DISORDER [None]
  - URTICARIA [None]
  - RASH PRURITIC [None]
  - DRY SKIN [None]
  - PURPURA [None]
  - SKIN LESION [None]
  - BLISTER [None]
  - CONDITION AGGRAVATED [None]
  - EXFOLIATIVE RASH [None]
  - RASH GENERALISED [None]
